FAERS Safety Report 15867937 (Version 1)
Quarter: 2019Q1

REPORT INFORMATION
  Report Type: Spontaneous
  Country: GB (occurrence: GB)
  Receive Date: 20190125
  Receipt Date: 20190125
  Transmission Date: 20190417
  Serious: Yes (Other)
  Sender: FDA-Public Use
  Company Number: PHHY2019GB015627

PATIENT
  Age: 22 Year
  Sex: Female
  Weight: 69.85 kg

DRUGS (1)
  1. CO-AMOXICLAV [Suspect]
     Active Substance: AMOXICILLIN\CLAVULANATE POTASSIUM
     Indication: INFECTION
     Dosage: 500/125MG
     Route: 048
     Dates: start: 20190103, end: 20190108

REACTIONS (7)
  - Vulvovaginal erythema [Not Recovered/Not Resolved]
  - Influenza like illness [Not Recovered/Not Resolved]
  - Lymphadenopathy [Not Recovered/Not Resolved]
  - Back pain [Unknown]
  - Oropharyngeal pain [Unknown]
  - Pyrexia [Not Recovered/Not Resolved]
  - Vulvovaginal swelling [Not Recovered/Not Resolved]

NARRATIVE: CASE EVENT DATE: 20190107
